FAERS Safety Report 7959581-3 (Version None)
Quarter: 2011Q4

REPORT INFORMATION
  Report Type: 
  Country: None (occurrence: None)
  Receive Date: 20111206
  Receipt Date: 20111124
  Transmission Date: 20120403
  Serious: Yes (Life-Threatening, Hospitalization, Disabling)
  Sender: FDA-Public Use
  Company Number: FR-SANOFI-AVENTIS-F01200801254

PATIENT
  Age: 76 Year
  Sex: Male
  Weight: 78 kg

DRUGS (15)
  1. FLURBIPROFEN [Concomitant]
     Indication: ANGINA PECTORIS
     Dates: start: 20080629
  2. LEUPROLIDE ACETATE [Suspect]
     Route: 065
     Dates: start: 20071109, end: 20080425
  3. AMLODIPINE BESYLATE [Concomitant]
     Dates: start: 19980201
  4. LEUPROLIDE ACETATE [Suspect]
     Route: 058
     Dates: start: 20080425, end: 20080425
  5. ALLOPURINOL ^1A FARMA^ [Concomitant]
     Indication: GOUT
     Dates: start: 20070201, end: 20080330
  6. PAROXETINE HCL [Concomitant]
     Indication: DEPRESSION
     Dates: start: 20050101
  7. LEUPROLIDE ACETATE [Suspect]
     Indication: PROSTATE CANCER
     Route: 058
     Dates: start: 20070518, end: 20070518
  8. LEUPROLIDE ACETATE [Suspect]
     Route: 058
     Dates: start: 20080725, end: 20080725
  9. ACETYLSALICYLATE DE LYSINE WINTHROP [Concomitant]
     Dates: start: 20051201, end: 20080206
  10. PRAVASTATIN [Concomitant]
     Dates: start: 19980201
  11. PANTOPRAZOLE SODIUM [Concomitant]
     Indication: GASTRITIS
     Dates: start: 20020101
  12. KARDEGIC /FRA/ [Concomitant]
     Indication: ANGINA PECTORIS
     Route: 048
     Dates: start: 20051201, end: 20080206
  13. BICALUTAMIDE [Suspect]
     Indication: PROSTATE CANCER
     Route: 048
     Dates: start: 20080425, end: 20080524
  14. PLAVIX [Concomitant]
     Dates: start: 20051201
  15. VISKEN [Concomitant]
     Indication: ANGINA PECTORIS
     Dates: start: 20080207

REACTIONS (2)
  - RENAL FAILURE ACUTE [None]
  - DISEASE PROGRESSION [None]
